FAERS Safety Report 7289023-5 (Version None)
Quarter: 2011Q1

REPORT INFORMATION
  Report Type: 
  Country: None (occurrence: None)
  Receive Date: 20110211
  Receipt Date: 20110207
  Transmission Date: 20110831
  Serious: Yes (Other)
  Sender: FDA-Public Use
  Company Number: MX-GENZYME-CERZ-1001850

PATIENT
  Age: 27 Year
  Sex: Female

DRUGS (1)
  1. CEREZYME [Suspect]
     Indication: GAUCHER'S DISEASE
     Dosage: UNK
     Route: 042

REACTIONS (2)
  - HIP DEFORMITY [None]
  - BONE INFARCTION [None]
